FAERS Safety Report 7909012-4 (Version None)
Quarter: 2011Q4

REPORT INFORMATION
  Report Type: 
  Country: None (occurrence: None)
  Receive Date: 20111111
  Receipt Date: 20101018
  Transmission Date: 20120403
  Serious: No
  Sender: FDA-Public Use
  Company Number: US-BAYER-201040016NA

PATIENT
  Age: 53 Year
  Sex: Female

DRUGS (2)
  1. CLIMARA [Suspect]
     Indication: HOT FLUSH
     Dosage: 100 MCG/24HR, UNK
     Route: 062
  2. CLIMARA [Suspect]
     Indication: HORMONE REPLACEMENT THERAPY

REACTIONS (2)
  - PRODUCT ADHESION ISSUE [None]
  - IRRITABILITY [None]
